FAERS Safety Report 17860346 (Version 1)
Quarter: 2020Q2

REPORT INFORMATION
  Report Type: Spontaneous
  Country: IT (occurrence: IT)
  Receive Date: 20200604
  Receipt Date: 20200604
  Transmission Date: 20200714
  Serious: Yes (Hospitalization, Other)
  Sender: FDA-Public Use
  Company Number: IT-PFIZER INC-2020218827

PATIENT
  Age: 78 Year
  Sex: Male

DRUGS (8)
  1. TRIATEC [RAMIPRIL] [Suspect]
     Active Substance: RAMIPRIL
     Indication: HYPERTENSION
     Dosage: 2.5 MG, QD
     Route: 048
     Dates: start: 20190101, end: 20191119
  2. ESKIM [Concomitant]
     Active Substance: OMEGA-3 FATTY ACIDS
     Dosage: UNK
     Route: 065
  3. AVODART [Concomitant]
     Active Substance: DUTASTERIDE
     Dosage: UNK
     Route: 065
  4. FUROSEMIDE. [Concomitant]
     Active Substance: FUROSEMIDE
     Dosage: 125 MG
     Route: 065
  5. TORVAST [Concomitant]
     Active Substance: ATORVASTATIN
     Dosage: UNK
     Route: 065
  6. CARDIOASPIRIN [Suspect]
     Active Substance: ASPIRIN
     Dosage: UNK
     Route: 065
     Dates: start: 20190101, end: 20191119
  7. CARVEDILOL. [Concomitant]
     Active Substance: CARVEDILOL
     Dosage: 37.5 MG
     Route: 065
  8. OMEPRAZOLE. [Concomitant]
     Active Substance: OMEPRAZOLE
     Dosage: UNK
     Route: 065

REACTIONS (2)
  - Anaemia [Unknown]
  - Melaena [Unknown]

NARRATIVE: CASE EVENT DATE: 20191119
